FAERS Safety Report 8078248-7 (Version None)
Quarter: 2012Q1

REPORT INFORMATION
  Report Type: 
  Country: None (occurrence: None)
  Receive Date: 20120123
  Receipt Date: 20120107
  Transmission Date: 20120608
  Serious: Yes (Hospitalization, Other)
  Sender: FDA-Public Use
  Company Number: 2012AP000046

PATIENT
  Age: 55 Year
  Sex: Male

DRUGS (2)
  1. GEMFIBROZIL [Suspect]
     Indication: HYPERTRIGLYCERIDAEMIA
     Dosage: 600 MG;BID
  2. INTERFERON [Concomitant]

REACTIONS (6)
  - LIVER INJURY [None]
  - HEPATOTOXICITY [None]
  - CHOLELITHIASIS [None]
  - HEPATITIS CHOLESTATIC [None]
  - FATIGUE [None]
  - HEPATIC STEATOSIS [None]
